FAERS Safety Report 24540536 (Version 1)
Quarter: 2024Q4

REPORT INFORMATION
  Report Type: Spontaneous
  Country: US (occurrence: US)
  Receive Date: 20241023
  Receipt Date: 20241023
  Transmission Date: 20250115
  Serious: Yes (Other)
  Sender: SANDOZ
  Company Number: US-002147023-NVSC2023US103044

PATIENT
  Age: 57 Year
  Sex: Male

DRUGS (5)
  1. ENTRESTO [Suspect]
     Active Substance: SACUBITRIL\VALSARTAN
     Indication: Product used for unknown indication
     Dosage: 24/ 26MG 1 DOSAGE FORM, BID
     Route: 065
     Dates: start: 20230426, end: 202305
  2. ENTRESTO [Suspect]
     Active Substance: SACUBITRIL\VALSARTAN
     Dosage: UNK
     Route: 065
     Dates: start: 20230615
  3. LISINOPRIL [Suspect]
     Active Substance: LISINOPRIL
     Indication: Product used for unknown indication
     Dosage: UNK
     Route: 065
     Dates: start: 2006, end: 20230430
  4. METOPROLOL [Suspect]
     Active Substance: METOPROLOL
     Indication: Product used for unknown indication
     Dosage: UNK
     Route: 065
     Dates: start: 202304
  5. LOSARTAN [Concomitant]
     Active Substance: LOSARTAN
     Indication: Product used for unknown indication
     Dosage: UNK
     Route: 065
     Dates: start: 202305, end: 202306

REACTIONS (10)
  - Ejection fraction decreased [Recovering/Resolving]
  - Neoplasm malignant [Unknown]
  - Cardiac failure [Unknown]
  - Brain natriuretic peptide increased [Unknown]
  - Heart rate increased [Recovered/Resolved]
  - Ventricular extrasystoles [Unknown]
  - Hepatic enzyme increased [Recovered/Resolved]
  - Dizziness [Recovering/Resolving]
  - Orthostatic hypotension [Recovered/Resolved]
  - Contraindicated product administered [Unknown]

NARRATIVE: CASE EVENT DATE: 20220801
